FAERS Safety Report 4922739-1 (Version None)
Quarter: 2006Q1

REPORT INFORMATION
  Report Type: 
  Country: None (occurrence: None)
  Receive Date: 20060224
  Receipt Date: 20060216
  Transmission Date: 20060701
  Serious: Yes (Hospitalization)
  Sender: FDA-Public Use
  Company Number: US-MERCK-0602USA04711

PATIENT
  Age: 78 Year
  Sex: Female
  Weight: 91 kg

DRUGS (9)
  1. VIOXX [Suspect]
     Indication: ARTHRITIS
     Route: 048
     Dates: start: 20031110, end: 20050201
  2. NOLVADEX [Suspect]
     Indication: BREAST CANCER
     Route: 048
     Dates: start: 20030613
  3. PRILOSEC [Concomitant]
     Route: 048
     Dates: start: 19980101
  4. ASACOL [Concomitant]
     Route: 048
     Dates: start: 19990101
  5. HYDROCHLOROTHIAZIDE [Concomitant]
     Route: 048
     Dates: start: 20020501
  6. XALATAN [Concomitant]
     Route: 047
     Dates: start: 19990101
  7. ALBUTEROL [Concomitant]
     Route: 055
     Dates: start: 20020301
  8. AZMACORT [Concomitant]
     Route: 055
     Dates: start: 20020301
  9. DIOVAN [Concomitant]
     Route: 048
     Dates: start: 20030601

REACTIONS (2)
  - ASTHMA [None]
  - HEADACHE [None]
